FAERS Safety Report 9074096 (Version 1)
Quarter: 2013Q1

REPORT INFORMATION
  Report Type: Report from Study
  Country: US (occurrence: US)
  Receive Date: 20130128
  Receipt Date: 20130128
  Transmission Date: 20140127
  Serious: No
  Sender: FDA-Public Use
  Company Number: US-ABBOTT-12P-163-0917718-00

PATIENT
  Age: 47 Year
  Sex: Female

DRUGS (20)
  1. HUMIRA 40 MG/0.8 ML PEN [Suspect]
     Indication: CROHN^S DISEASE
     Dates: start: 20120309, end: 20120309
  2. HUMIRA 40 MG/0.8 ML PEN [Suspect]
  3. PREDNISONE [Concomitant]
     Indication: CROHN^S DISEASE
  4. PENTASA [Concomitant]
     Indication: CROHN^S DISEASE
  5. DEXILANT [Concomitant]
     Indication: GASTROOESOPHAGEAL REFLUX DISEASE
  6. METFORMIN [Concomitant]
     Indication: DIABETES MELLITUS
  7. VICTOZA [Concomitant]
     Indication: DIABETES MELLITUS
     Route: 058
  8. LANTUS [Concomitant]
     Indication: DIABETES MELLITUS
     Route: 058
  9. CRESTOR [Concomitant]
     Indication: BLOOD CHOLESTEROL INCREASED
  10. SINGULAR [Concomitant]
     Indication: HYPERSENSITIVITY
  11. ASTELIN [Concomitant]
     Indication: HYPERSENSITIVITY
     Dosage: NASAL SPRAY DAILY
     Route: 045
  12. OMNARIS [Concomitant]
     Indication: HYPERSENSITIVITY
     Dosage: NASAL SPRAY DAILY
     Route: 045
  13. ALVESCO [Concomitant]
     Indication: HYPERSENSITIVITY
     Route: 055
  14. ALBUTEROL SULFATE [Concomitant]
     Indication: HYPERSENSITIVITY
     Dosage: NEBULIZER
  15. IPRATROPIUM BROMIDE [Concomitant]
     Indication: HYPERSENSITIVITY
     Route: 055
  16. VENTOLIN [Concomitant]
     Indication: HYPERSENSITIVITY
     Dosage: RESCUE INHALER
  17. CITALOPRAM [Concomitant]
     Indication: DEPRESSION
  18. CLONAZEPAM [Concomitant]
     Indication: INSOMNIA
  19. OXYCODONE/APAP [Concomitant]
     Indication: CROHN^S DISEASE
     Dosage: 5/325
  20. OXYCODONE/APAP [Concomitant]
     Indication: PAIN

REACTIONS (6)
  - Urine abnormality [Not Recovered/Not Resolved]
  - Urine analysis abnormal [Not Recovered/Not Resolved]
  - Pelvic discomfort [Not Recovered/Not Resolved]
  - Constipation [Not Recovered/Not Resolved]
  - Urine output decreased [Not Recovered/Not Resolved]
  - Blood glucose increased [Not Recovered/Not Resolved]
